FAERS Safety Report 7140113 (Version 14)
Quarter: 2014Q2

REPORT INFORMATION
  Report Type: Spontaneous
  Country: US (occurrence: US)
  Receive Date: 20091006
  Receipt Date: 20140414
  Transmission Date: 20141212
  Serious: Yes (Hospitalization)
  Sender: FDA-Public Use
  Company Number: US-BIOGENIDEC-204057

PATIENT
  Age: 53 Year
  Sex: Female
  Weight: 80 kg

DRUGS (6)
  1. AVONEX [Suspect]
     Indication: MULTIPLE SCLEROSIS
     Route: 030
     Dates: start: 20000215, end: 20041011
  2. AVONEX [Suspect]
     Indication: MULTIPLE SCLEROSIS
     Route: 030
     Dates: start: 20041115, end: 20050216
  3. AVONEX [Suspect]
     Indication: MULTIPLE SCLEROSIS
     Route: 030
     Dates: start: 20090801
  4. AVONEX [Suspect]
     Indication: MULTIPLE SCLEROSIS
     Route: 030
     Dates: start: 20091030, end: 2013
  5. ADVIL [Concomitant]
  6. TRILEPTAL [Concomitant]
     Indication: TRIGEMINAL NEURALGIA

REACTIONS (22)
  - Invasive ductal breast carcinoma [Recovered/Resolved]
  - Intraductal proliferative breast lesion [Recovered/Resolved]
  - Thyroid disorder [Recovered/Resolved]
  - Synovial cyst [Recovered/Resolved]
  - Basedow^s disease [Recovered/Resolved]
  - Breast haemorrhage [Recovered/Resolved]
  - Nasopharyngitis [Recovered/Resolved]
  - Trigeminal neuralgia [Recovered/Resolved]
  - Limb discomfort [Unknown]
  - Musculoskeletal disorder [Unknown]
  - Peripheral coldness [Unknown]
  - Nephrolithiasis [Recovered/Resolved]
  - Muscle fibrosis [Recovered/Resolved]
  - Scar [Recovered/Resolved]
  - Urticaria [Not Recovered/Not Resolved]
  - Anxiety [Recovered/Resolved]
  - Dyspnoea [Recovered/Resolved]
  - Chest discomfort [Recovered/Resolved]
  - Pain [Unknown]
  - Hepatic enzyme increased [Unknown]
  - Muscle spasms [Unknown]
  - Muscle tightness [Unknown]
